FAERS Safety Report 13473329 (Version 5)
Quarter: 2018Q4

REPORT INFORMATION
  Report Type: Spontaneous
  Country: JP (occurrence: JP)
  Receive Date: 20170424
  Receipt Date: 20181027
  Transmission Date: 20190204
  Serious: Yes (Death, Hospitalization, Other)
  Sender: FDA-Public Use
  Company Number: JP-009507513-1704JPN000098J

PATIENT
  Age: 76 Year
  Sex: Male
  Weight: 53 kg

DRUGS (10)
  1. LYRICA [Concomitant]
     Active Substance: PREGABALIN
     Indication: LUNG ADENOCARCINOMA
     Dosage: 25 MG, QD
     Route: 048
     Dates: start: 20170329, end: 20170424
  2. PARIET [Concomitant]
     Active Substance: RABEPRAZOLE SODIUM
     Indication: PROPHYLAXIS
     Dosage: 10 MG, QD
     Route: 048
     Dates: end: 20170403
  3. HERBAL NOS [Concomitant]
     Active Substance: HERBALS
     Indication: PROPHYLAXIS
     Dosage: 2.5 G, TID
     Route: 048
     Dates: start: 20170404, end: 20170417
  4. KEYTRUDA [Suspect]
     Active Substance: PEMBROLIZUMAB
     Indication: LUNG ADENOCARCINOMA
     Dosage: 200 MG, Q3W
     Route: 041
     Dates: start: 20170322, end: 2017
  5. AMLODIPINE BESYLATE. [Concomitant]
     Active Substance: AMLODIPINE BESYLATE
     Dosage: 5.0 MG, QD
     Route: 048
     Dates: end: 20170403
  6. CALONAL [Concomitant]
     Active Substance: ACETAMINOPHEN
     Indication: LUNG ADENOCARCINOMA
     Dosage: 400 MG, TID
     Route: 048
     Dates: end: 20170417
  7. SENNARIDE [Concomitant]
     Active Substance: SENNOSIDES A AND B
     Indication: PROPHYLAXIS
     Dosage: 24 MG, QD
     Route: 048
     Dates: start: 20170330, end: 20170417
  8. MAGNESIUM OXIDE. [Concomitant]
     Active Substance: MAGNESIUM OXIDE
     Indication: PROPHYLAXIS
     Dosage: 250 MG, TID
     Route: 048
     Dates: end: 20170410
  9. FENTOS [Concomitant]
     Active Substance: FENTANYL
     Indication: LUNG ADENOCARCINOMA
     Dosage: 2 MG, QD
     Route: 051
     Dates: start: 20170413, end: 20170427
  10. SODIUM CHLORIDE. [Concomitant]
     Active Substance: SODIUM CHLORIDE
     Indication: LUNG ADENOCARCINOMA
     Dosage: 1 G, TID
     Route: 048
     Dates: start: 20170306, end: 20170427

REACTIONS (3)
  - Malaise [Unknown]
  - Thyroxine increased [Unknown]
  - Malignant neoplasm progression [Fatal]

NARRATIVE: CASE EVENT DATE: 2017
